FAERS Safety Report 24588925 (Version 1)
Quarter: 2024Q4

REPORT INFORMATION
  Report Type: Spontaneous
  Country: SE (occurrence: SE)
  Receive Date: 20241107
  Receipt Date: 20241107
  Transmission Date: 20250115
  Serious: Yes (Other)
  Sender: PFIZER
  Company Number: None

PATIENT
  Age: 85 Year
  Sex: Male

DRUGS (12)
  1. LEVETIRACETAM [Suspect]
     Active Substance: LEVETIRACETAM
     Indication: Seizure
     Dosage: 4500 MG, SINGLE (AFTER THAT 1500 MG AT 08:00 AND 20:00)
     Route: 042
     Dates: start: 20240914, end: 20240914
  2. LEVETIRACETAM [Suspect]
     Active Substance: LEVETIRACETAM
     Dosage: 1500 MG, 2X/DAY (EVERY 12 HOURS)
  3. ELIQUIS [Concomitant]
     Active Substance: APIXABAN
     Dosage: 5 MG, DAILY
  4. RINGER-ACETAT BAXTER VIAFLO [Concomitant]
     Dosage: 1000 ML, SINGLE
     Dates: start: 20240914, end: 20240914
  5. RINGER-ACETAT BAXTER VIAFLO [Concomitant]
     Dosage: 1000 ML, SINGLE
     Dates: start: 20240915, end: 20240915
  6. DIAZEPAM [Concomitant]
     Active Substance: DIAZEPAM
     Dosage: 1 ML, AS NEEDED
     Route: 042
     Dates: start: 20240916
  7. ZOPICLONE [Concomitant]
     Active Substance: ZOPICLONE
     Dosage: 7.5 MG, SINGLE
     Route: 048
     Dates: start: 20240916
  8. METOPROLOL TARTRATE [Concomitant]
     Active Substance: METOPROLOL TARTRATE
     Dosage: 50 MG, DAILY
     Route: 048
  9. UREA [Concomitant]
     Active Substance: UREA
     Dosage: 2X/DAY (EXTERNAL USE)
     Route: 003
     Dates: start: 20240914
  10. NATRIUMKLORID FRESENIUS KABI [Concomitant]
     Dosage: 100 ML, SINGLE
     Dates: start: 20240914
  11. OXAZEPAM [Concomitant]
     Active Substance: OXAZEPAM
     Dosage: 5 MG, AS NEEDED
     Route: 048
     Dates: start: 20240917
  12. ATORVASTATIN EBB [Concomitant]
     Dosage: 40 MG, DAILY
     Route: 048
     Dates: start: 20240914

REACTIONS (5)
  - Hallucination [Recovered/Resolved]
  - Agitation [Recovered/Resolved]
  - Anxiety [Recovered/Resolved]
  - Off label use [Unknown]
  - Off label use [Unknown]

NARRATIVE: CASE EVENT DATE: 20240901
